FAERS Safety Report 10193702 (Version 1)
Quarter: 2014Q2

REPORT INFORMATION
  Report Type: Spontaneous
  Country: BE (occurrence: BE)
  Receive Date: 20140524
  Receipt Date: 20140524
  Transmission Date: 20141212
  Serious: Yes (Hospitalization)
  Sender: FDA-Public Use
  Company Number: PHHY2014BE060121

PATIENT
  Age: 51 Year
  Sex: Female

DRUGS (2)
  1. OMEPRAZOLE [Suspect]
     Indication: PEPTIC ULCER
     Dosage: 40 MG, DAILY
  2. AMLODIPINE [Concomitant]
     Indication: HYPERTENSION

REACTIONS (11)
  - Hypokalaemia [Unknown]
  - Electrocardiogram QT prolonged [Unknown]
  - Hypomagnesaemia [Recovered/Resolved]
  - Hypocalcaemia [Unknown]
  - Convulsion [Unknown]
  - Confusional state [Unknown]
  - Ataxia [Unknown]
  - Tetany [Unknown]
  - Nystagmus [Unknown]
  - Vomiting [Unknown]
  - Diarrhoea [Unknown]
